FAERS Safety Report 7757519-5 (Version None)
Quarter: 2011Q3

REPORT INFORMATION
  Report Type: 
  Country: None (occurrence: None)
  Receive Date: 20110916
  Receipt Date: 20110915
  Transmission Date: 20111222
  Serious: Yes (Death, Hospitalization)
  Sender: FDA-Public Use
  Company Number: FR-ROCHE-773406

PATIENT
  Sex: Male
  Weight: 69 kg

DRUGS (5)
  1. TEMOZOLOMIDE [Suspect]
     Indication: GLIOBLASTOMA
     Dosage: LAST DOSE PRIOR TO SAE: 16 MAY 2011
     Route: 048
     Dates: start: 20110406
  2. ACETAMINOPHEN [Concomitant]
  3. BEVACIZUMAB [Suspect]
     Indication: GLIOBLASTOMA
     Dosage: LAST DOSE PRIOR TO SAE: 23 MAY 2011
     Route: 065
     Dates: start: 20110406
  4. ARIXTRA [Concomitant]
  5. NOVORAPID [Concomitant]

REACTIONS (4)
  - PYREXIA [None]
  - INFECTION [None]
  - NERVOUS SYSTEM DISORDER [None]
  - HYPERTHERMIA [None]
